FAERS Safety Report 4749131-7 (Version None)
Quarter: 2005Q3

REPORT INFORMATION
  Report Type: 
  Country: None (occurrence: None)
  Receive Date: 20050817
  Receipt Date: 20050804
  Transmission Date: 20060218
  Serious: Yes (Hospitalization)
  Sender: FDA-Public Use
  Company Number: SUS1-2005-00614

PATIENT
  Age: 35 Year
  Sex: Female

DRUGS (3)
  1. PENTASA [Suspect]
     Indication: CROHN'S DISEASE
     Dosage: 3000 MG/DAY, ORAL : SINGLE DOSE 7500MG, ORAL
     Route: 048
     Dates: start: 20020101, end: 20050726
  2. PENTASA [Suspect]
     Indication: CROHN'S DISEASE
     Dosage: 3000 MG/DAY, ORAL : SINGLE DOSE 7500MG, ORAL
     Route: 048
     Dates: start: 20050726, end: 20050726
  3. PL GRAN(CAFFEINE, PROMETHAZINE METHYLENE DISALICYLATE, SALICYLAMIDE) [Suspect]
     Dosage: ORAL
     Route: 048
     Dates: start: 20050726, end: 20050726

REACTIONS (6)
  - DIARRHOEA [None]
  - HYPOAESTHESIA [None]
  - HYPOKALAEMIA [None]
  - OVERDOSE [None]
  - PYREXIA [None]
  - SUICIDE ATTEMPT [None]
